FAERS Safety Report 13044273 (Version 1)
Quarter: 2016Q4

REPORT INFORMATION
  Report Type: Spontaneous
  Country: US (occurrence: US)
  Receive Date: 20161220
  Receipt Date: 20161220
  Transmission Date: 20170207
  Serious: Yes (Other)
  Sender: FDA-Public Use
  Company Number: US-ROCHE-1027279

PATIENT
  Age: 77 Year
  Sex: Female
  Weight: 58.57 kg

DRUGS (3)
  1. ZELBORAF [Suspect]
     Active Substance: VEMURAFENIB
     Dosage: 720 MG N MORNING AND 480 MG IN EVENING
     Route: 065
     Dates: start: 20120323
  2. ZELBORAF [Suspect]
     Active Substance: VEMURAFENIB
     Route: 048
  3. ZELBORAF [Suspect]
     Active Substance: VEMURAFENIB
     Indication: METASTATIC MALIGNANT MELANOMA
     Route: 048
     Dates: start: 20120201, end: 20120205

REACTIONS (14)
  - Joint swelling [Unknown]
  - Arthralgia [Unknown]
  - Alopecia [Unknown]
  - Underdose [Unknown]
  - Decreased appetite [Recovering/Resolving]
  - Nausea [Unknown]
  - Diarrhoea [Recovered/Resolved]
  - Rash [Unknown]
  - Mass [Unknown]
  - Fatigue [Recovering/Resolving]
  - Sunburn [Unknown]
  - Squamous cell carcinoma [Not Recovered/Not Resolved]
  - Joint swelling [Not Recovered/Not Resolved]
  - Blindness [Unknown]

NARRATIVE: CASE EVENT DATE: 20120110
